FAERS Safety Report 8383809-1 (Version None)
Quarter: 2012Q2

REPORT INFORMATION
  Report Type: 
  Country: None (occurrence: None)
  Receive Date: 20120524
  Receipt Date: 20120312
  Transmission Date: 20120825
  Serious: Yes (Other)
  Sender: FDA-Public Use
  Company Number: US-ROCHE-1044852

PATIENT
  Sex: Male
  Weight: 82.174 kg

DRUGS (3)
  1. METOPROLOL [Concomitant]
     Indication: HYPERTENSION
     Route: 048
  2. ZELBORAF [Suspect]
     Indication: MALIGNANT MELANOMA
     Route: 048
     Dates: start: 20111227, end: 20120203
  3. DIOVAN [Concomitant]
     Indication: HYPERTENSION
     Route: 048

REACTIONS (6)
  - ARTHRALGIA [None]
  - FATIGUE [None]
  - HEPATIC ENZYME INCREASED [None]
  - PYREXIA [None]
  - HYPOPHAGIA [None]
  - CHILLS [None]
